FAERS Safety Report 23272856 (Version 1)
Quarter: 2023Q4

REPORT INFORMATION
  Report Type: Spontaneous
  Country: DE (occurrence: DE)
  Receive Date: 20231207
  Receipt Date: 20231207
  Transmission Date: 20240110
  Serious: Yes (Hospitalization)
  Sender: FDA-Public Use
  Company Number: DE-002147023-NVSC2021DE168113

PATIENT
  Sex: Female
  Weight: 73 kg

DRUGS (5)
  1. FULVESTRANT [Suspect]
     Active Substance: FULVESTRANT
     Dosage: 500 G, Q4W (EVERY FOUR WEEKS)
     Route: 065
  2. FULVESTRANT [Suspect]
     Active Substance: FULVESTRANT
     Indication: Breast cancer metastatic
     Dosage: 500 MG, Q4W (EVERY 4 WEEKS)
     Route: 030
     Dates: start: 20200310, end: 20200816
  3. KISQALI [Suspect]
     Active Substance: RIBOCICLIB
     Dosage: 200 MG, QD (SCHEMA 21 DAYS INTAKE, THEN 7 DAYS PAUSE)
     Route: 048
     Dates: start: 20200701, end: 20200723
  4. KISQALI [Suspect]
     Active Substance: RIBOCICLIB
     Indication: Breast cancer metastatic
     Dosage: 400 MG, QD (SCHEMA 21 DAYS INTAKE, THEN 7 DAYS PAUSE)
     Route: 048
     Dates: start: 20200311, end: 20200601
  5. IBRANCE [Concomitant]
     Active Substance: PALBOCICLIB
     Indication: Product used for unknown indication
     Dosage: 100 G, QD
     Route: 048
     Dates: start: 20200817

REACTIONS (2)
  - Confusional state [Recovering/Resolving]
  - Metastases to central nervous system [Recovered/Resolved]

NARRATIVE: CASE EVENT DATE: 20210720
